FAERS Safety Report 25111174 (Version 2)
Quarter: 2025Q2

REPORT INFORMATION
  Report Type: Spontaneous
  Country: CA (occurrence: CA)
  Receive Date: 20250324
  Receipt Date: 20250516
  Transmission Date: 20250717
  Serious: Yes (Death, Other)
  Sender: Kenvue
  Company Number: CA-KENVUE-20250305637

PATIENT

DRUGS (1)
  1. TYLENOL [Suspect]
     Active Substance: ACETAMINOPHEN
     Indication: Product used for unknown indication
     Route: 065

REACTIONS (10)
  - Abdominal pain [Fatal]
  - Aspiration [Fatal]
  - Confusional state [Fatal]
  - Decreased appetite [Fatal]
  - Dysphagia [Fatal]
  - Nausea [Fatal]
  - Penis injury [Fatal]
  - Pruritus [Fatal]
  - Rash [Fatal]
  - Vomiting [Fatal]

NARRATIVE: CASE EVENT DATE: 20231101
